FAERS Safety Report 24541169 (Version 1)
Quarter: 2024Q4

REPORT INFORMATION
  Report Type: Spontaneous
  Country: US (occurrence: None)
  Receive Date: 20241023
  Receipt Date: 20241023
  Transmission Date: 20250115
  Serious: No
  Sender: Public
  Company Number: None

PATIENT

DRUGS (3)
  1. PROPOFOL [Suspect]
     Active Substance: PROPOFOL
  2. CLEVIPREX [Suspect]
     Active Substance: CLEVIDIPINE
  3. PRECEDEX [Suspect]
     Active Substance: DEXMEDETOMIDINE HYDROCHLORIDE

REACTIONS (2)
  - Product name confusion [None]
  - Product administration error [None]
